FAERS Safety Report 8713629 (Version 2)
Quarter: 2012Q4

REPORT INFORMATION
  Report Type: 
  Country: JP (occurrence: JP)
  Receive Date: 20120808
  Receipt Date: 20120830
  Transmission Date: 20130627
  Serious: Yes (Death, Hospitalization, Other)
  Sender: FDA-Public Use
  Company Number: JP-ELI_LILLY_AND_COMPANY-JP201207006215

PATIENT
  Age: 59 Year
  Sex: Male
  Weight: 57 kg

DRUGS (17)
  1. ALIMTA [Suspect]
     Indication: NON-SMALL CELL LUNG CANCER STAGE IIIB
     Dosage: 500 mg/m2, q21d
     Route: 042
     Dates: start: 20120710, end: 20120710
  2. GEMZAR [Suspect]
     Indication: NON-SMALL CELL LUNG CANCER STAGE IIIB
     Dosage: UNK
     Route: 042
     Dates: start: 20120221, end: 20120605
  3. FOLIC ACID [Concomitant]
     Dosage: 1 g, qd
     Route: 048
     Dates: start: 20120619, end: 20120721
  4. METHYCOBAL [Concomitant]
     Dosage: 1500 ug, qd
     Route: 048
     Dates: start: 20101214
  5. METHYCOBAL [Concomitant]
     Dosage: 1 mg, qd
     Route: 030
     Dates: start: 20120619
  6. CARBOPLATIN [Concomitant]
     Indication: LUNG ADENOCARCINOMA
     Dosage: UNK
     Dates: start: 20120221, end: 20120605
  7. PREDONINE [Concomitant]
     Indication: MICROSCOPIC POLYANGIITIS
     Dosage: 12.5 mg, qd
     Route: 048
     Dates: start: 20120522
  8. GLIMEPIRIDE [Concomitant]
     Indication: POLYURIA
     Dosage: UNK
     Route: 048
     Dates: start: 20101227
  9. JANUVIA [Concomitant]
     Indication: POLYURIA
     Dosage: 50 mg, qd
     Route: 048
     Dates: start: 20110114
  10. ALINAMIN F [Concomitant]
     Indication: MICROSCOPIC POLYANGIITIS
     Dosage: 50 mg, bid
     Route: 048
     Dates: start: 20101214
  11. METHYCOOL [Concomitant]
     Indication: MICROSCOPIC POLYANGIITIS
     Dosage: 1000 ug, bid
     Route: 048
     Dates: start: 20101214
  12. CARNACULIN                         /00088101/ [Concomitant]
     Indication: MICROSCOPIC POLYANGIITIS
     Dosage: 150 IU, tid
     Route: 048
     Dates: start: 20101214
  13. LYRICA [Concomitant]
     Indication: MICROSCOPIC POLYANGIITIS
     Dosage: UNK
     Route: 048
     Dates: start: 20110819
  14. MUCODYNE [Concomitant]
     Indication: EMPHYSEMA
     Dosage: 1500 mg, tid
     Route: 048
     Dates: start: 20120215
  15. SENNOSIDE                          /00571901/ [Concomitant]
     Indication: CONSTIPATION
     Dosage: 24 mg, qd
     Route: 048
     Dates: start: 20120215
  16. PROCATEROL [Concomitant]
     Indication: EMPHYSEMA
     Dosage: 2 mg, qd
     Route: 062
     Dates: start: 20120215
  17. COLDRIN [Concomitant]
     Indication: LUNG NEOPLASM MALIGNANT
     Dosage: 75 mg, tid
     Route: 048
     Dates: start: 20120215

REACTIONS (2)
  - Interstitial lung disease [Fatal]
  - Neoplasm progression [Unknown]
